FAERS Safety Report 9645977 (Version 1)
Quarter: 2013Q4

REPORT INFORMATION
  Report Type: Spontaneous
  Country: CA (occurrence: CA)
  Receive Date: 20131025
  Receipt Date: 20131025
  Transmission Date: 20140711
  Serious: Yes (Other)
  Sender: FDA-Public Use
  Company Number: CA-GLAXOSMITHKLINE-A1046402A

PATIENT
  Sex: Male

DRUGS (4)
  1. TAFINLAR [Suspect]
     Indication: METASTATIC MALIGNANT MELANOMA
     Dosage: 300MG PER DAY
     Route: 065
  2. BLOOD PRESSURE MEDICATION [Concomitant]
  3. BLOOD PRESSURE MEDICATION [Concomitant]
  4. BLOOD PRESSURE MEDICATION [Concomitant]

REACTIONS (8)
  - Diplegia [Unknown]
  - Palliative care [Unknown]
  - Diarrhoea [Unknown]
  - Vomiting [Unknown]
  - Dysstasia [Unknown]
  - Adverse drug reaction [Unknown]
  - Bedridden [Unknown]
  - Condition aggravated [Unknown]
